FAERS Safety Report 6332263-X (Version None)
Quarter: 2009Q3

REPORT INFORMATION
  Report Type: 
  Country: None (occurrence: None)
  Receive Date: 20090828
  Receipt Date: 20090820
  Transmission Date: 20100115
  Serious: Yes (Other)
  Sender: FDA-Public Use
  Company Number: US-CELGENEUS-163-21880-09081669

PATIENT
  Sex: Female

DRUGS (5)
  1. REVLIMID [Suspect]
     Indication: MULTIPLE MYELOMA
     Route: 048
     Dates: start: 20090812, end: 20090814
  2. REVLIMID [Suspect]
     Route: 048
     Dates: start: 20070314, end: 20070502
  3. REVLIMID [Suspect]
     Route: 048
     Dates: start: 20070611, end: 20071201
  4. REVLIMID [Suspect]
     Route: 048
     Dates: start: 20071221, end: 20080123
  5. MOTRIN [Suspect]
     Indication: PAIN
     Route: 065

REACTIONS (5)
  - ANAPHYLACTIC REACTION [None]
  - BACK PAIN [None]
  - FATIGUE [None]
  - OEDEMA PERIPHERAL [None]
  - RENAL FAILURE [None]
